FAERS Safety Report 19545056 (Version 5)
Quarter: 2021Q4

REPORT INFORMATION
  Report Type: Report from Study
  Country: US (occurrence: US)
  Receive Date: 20210713
  Receipt Date: 20211225
  Transmission Date: 20220303
  Serious: No
  Sender: FDA-Public Use
  Company Number: NVSC2021US149584

PATIENT
  Age: 66 Year
  Sex: Male

DRUGS (1)
  1. ENTRESTO [Suspect]
     Active Substance: SACUBITRIL\VALSARTAN
     Indication: Cardiac failure
     Dosage: 24.26 MG, BID (24/26 MG TAB CUT IN HALF AND TAKEN 2 X DAILY)
     Route: 048
     Dates: start: 202102

REACTIONS (5)
  - Weight decreased [Recovering/Resolving]
  - Glycosylated haemoglobin [Recovering/Resolving]
  - Product dose omission issue [Unknown]
  - Wrong technique in product usage process [Recovering/Resolving]
  - Hypotension [Recovering/Resolving]

NARRATIVE: CASE EVENT DATE: 20210201
